FAERS Safety Report 6061917-8 (Version None)
Quarter: 2009Q1

REPORT INFORMATION
  Report Type: 
  Country: None (occurrence: None)
  Receive Date: 20090202
  Receipt Date: 20090122
  Transmission Date: 20090719
  Serious: Yes (Other)
  Sender: FDA-Public Use
  Company Number: PHHY2009CA02718

PATIENT
  Sex: Female

DRUGS (4)
  1. SANDOSTATIN LAR [Suspect]
     Indication: ACROMEGALY
     Dosage: 30 MG EVERY 4 WEKS
     Route: 030
     Dates: start: 20020101
  2. SANDOSTATIN LAR [Suspect]
     Dosage: 30 MG EVERY 3 WEEKS
     Route: 030
  3. SANDOSTATIN LAR [Suspect]
     Dosage: 30 MG EVERY 6 WEEKS
     Route: 030
  4. SANDOSTATIN LAR [Suspect]
     Dosage: 30 MG EVERY 5 WEEKS
     Route: 030

REACTIONS (4)
  - FATIGUE [None]
  - GENERAL PHYSICAL HEALTH DETERIORATION [None]
  - HEADACHE [None]
  - PAIN [None]
